FAERS Safety Report 8259176-0 (Version None)
Quarter: 2012Q2

REPORT INFORMATION
  Report Type: 
  Country: None (occurrence: None)
  Receive Date: 20120404
  Receipt Date: 20120326
  Transmission Date: 20120825
  Serious: Yes (Other)
  Sender: FDA-Public Use
  Company Number: FR-ASTRAZENECA-2012SE20834

PATIENT
  Age: 559 Month
  Sex: Male

DRUGS (1)
  1. XYLOCAINE W/ EPINEPHRINE [Suspect]
     Indication: ANAESTHESIA
     Dosage: 10 MG/ML
     Route: 058
     Dates: start: 20120126, end: 20120126

REACTIONS (3)
  - PRURITUS GENERALISED [None]
  - HYPOAESTHESIA [None]
  - HYPERAESTHESIA [None]
